FAERS Safety Report 18881891 (Version 1)
Quarter: 2021Q1

REPORT INFORMATION
  Report Type: Report from Study
  Country: JP (occurrence: JP)
  Receive Date: 20210211
  Receipt Date: 20210211
  Transmission Date: 20210420
  Serious: Yes (Death)
  Sender: FDA-Public Use
  Company Number: JP-GUERBET-JP-20210015

PATIENT

DRUGS (8)
  1. MITOMYCIN. [Suspect]
     Active Substance: MITOMYCIN
     Indication: TRANSCATHETER ARTERIAL CHEMOEMBOLISATION
     Dosage: 2?6 MG
     Route: 013
  2. GELPART [Concomitant]
     Active Substance: GELATIN
     Indication: TRANSCATHETER ARTERIAL CHEMOEMBOLISATION
     Route: 013
  3. TERUMO [Concomitant]
     Indication: PROPHYLAXIS
     Dosage: 2%
     Route: 065
  4. IA?CALL [Suspect]
     Active Substance: CISPLATIN
     Indication: TRANSCATHETER ARTERIAL CHEMOEMBOLISATION
     Dosage: 50 MG
     Route: 013
  5. LIPIODOL [Suspect]
     Active Substance: ETHIODIZED OIL
     Indication: TRANSCATHETER ARTERIAL CHEMOEMBOLISATION
     Dosage: 2?8 ML
     Route: 013
  6. FARMORUBICIN [Suspect]
     Active Substance: EPIRUBICIN HYDROCHLORIDE
     Indication: TRANSCATHETER ARTERIAL CHEMOEMBOLISATION
     Dosage: 10?30 MG
     Route: 013
  7. TERUMO [Concomitant]
     Indication: VASOSPASM
  8. PENTAGIN [Concomitant]
     Active Substance: PENTAZOCINE HYDROCHLORIDE
     Indication: ANALGESIC THERAPY
     Route: 042

REACTIONS (2)
  - Myocardial infarction [Fatal]
  - Product use in unapproved indication [Fatal]
